FAERS Safety Report 23793755 (Version 1)
Quarter: 2024Q2

REPORT INFORMATION
  Report Type: Spontaneous
  Country: US (occurrence: US)
  Receive Date: 20240429
  Receipt Date: 20240429
  Transmission Date: 20240715
  Serious: No
  Sender: FDA-Public Use
  Company Number: US-BAYER-2024A059534

PATIENT

DRUGS (2)
  1. ALEVE [Suspect]
     Active Substance: NAPROXEN SODIUM
     Indication: Pain
  2. ALEVE [Suspect]
     Active Substance: NAPROXEN SODIUM
     Indication: Toothache

REACTIONS (1)
  - Drug ineffective [Unknown]
